FAERS Safety Report 9417713 (Version 1)
Quarter: 2013Q3

REPORT INFORMATION
  Report Type: Spontaneous
  Country: US (occurrence: US)
  Receive Date: 20130724
  Receipt Date: 20130724
  Transmission Date: 20140515
  Serious: Yes (Hospitalization)
  Sender: FDA-Public Use
  Company Number: US-GLAXOSMITHKLINE-A0890947A

PATIENT
  Age: 42 Year
  Sex: Male

DRUGS (1)
  1. AVANDIA [Suspect]
     Indication: DIABETES MELLITUS
     Dosage: 8MG PER DAY
     Route: 048
     Dates: start: 20050101, end: 20081022

REACTIONS (6)
  - Ischaemic stroke [Not Recovered/Not Resolved]
  - Transient ischaemic attack [Unknown]
  - Headache [Unknown]
  - Libido decreased [Unknown]
  - Visual acuity reduced [Unknown]
  - Balance disorder [Unknown]
